FAERS Safety Report 14355633 (Version 2)
Quarter: 2018Q1

REPORT INFORMATION
  Report Type: Spontaneous
  Country: US (occurrence: US)
  Receive Date: 20180105
  Receipt Date: 20180309
  Transmission Date: 20180509
  Serious: No
  Sender: FDA-Public Use
  Company Number: US-PFIZER INC-2018003778

PATIENT
  Age: 77 Year
  Sex: Female

DRUGS (13)
  1. TYLENOL [Concomitant]
     Active Substance: ACETAMINOPHEN
     Dosage: 650 MG, AS NEEDED, [2 TWICE A DAY PRN]
  2. OMEPRAZOLE. [Concomitant]
     Active Substance: OMEPRAZOLE
     Dosage: 20 MG, 1X/DAY, [EVERY MORNING]
  3. GABAPENTIN. [Suspect]
     Active Substance: GABAPENTIN
     Indication: FIBROMYALGIA
     Dosage: 300 MG, 2X/DAY, [EVERY 12 HOURS]
     Route: 048
     Dates: start: 20170307, end: 20170915
  4. BENADRYL [Concomitant]
     Active Substance: DIPHENHYDRAMINE HYDROCHLORIDE
     Dosage: 25 MG, 1X/DAY, [EVERY MORNING]
  5. ASPIRIN. [Concomitant]
     Active Substance: ASPIRIN
     Dosage: 81 MG, 1X/DAY, [EVERY MORNING]
  6. VITAMIN D3 [Concomitant]
     Active Substance: CHOLECALCIFEROL
     Dosage: 1000 IU, 1X/DAY, [EVERY MORNING]
  7. 5-HTP [Concomitant]
     Active Substance: OXITRIPTAN
     Dosage: 100 MG, 1X/DAY, [EVERY MORNING]
  8. MAGNESIUM [Concomitant]
     Active Substance: MAGNESIUM
     Dosage: 100 MG, 1X/DAY, [EVERY MORNING]
  9. NEURONTIN [Suspect]
     Active Substance: GABAPENTIN
     Indication: FIBROMYALGIA
     Dosage: 300 MG, 2X/DAY [300 MG EVERY 12 HOURS]
     Route: 048
     Dates: start: 20170307, end: 20170915
  10. VITAMIN B12 [Concomitant]
     Active Substance: CYANOCOBALAMIN
     Dosage: UNK
  11. VITAMIN E [Concomitant]
     Active Substance: .ALPHA.-TOCOPHEROL
     Dosage: 1000 IU, 1X/DAY, [EVERY MORNING]
  12. CORAL CALCIUM [Concomitant]
     Active Substance: DIETARY SUPPLEMENT
     Dosage: UNK
  13. ALEVE [Concomitant]
     Active Substance: NAPROXEN SODIUM
     Dosage: 220 MG, AS NEEDED, [1 TWICE A DAY PRN FOR 10 DAYS]

REACTIONS (5)
  - Joint swelling [Recovered/Resolved]
  - Eye swelling [Recovered/Resolved]
  - Drug hypersensitivity [Unknown]
  - Fluid retention [Unknown]
  - Swelling [Recovered/Resolved]

NARRATIVE: CASE EVENT DATE: 20170518
